FAERS Safety Report 6643555-9 (Version None)
Quarter: 2010Q1

REPORT INFORMATION
  Report Type: 
  Country: None (occurrence: None)
  Receive Date: 20100320
  Receipt Date: 20100311
  Transmission Date: 20100710
  Serious: Yes (Other)
  Sender: FDA-Public Use
  Company Number: BR-B.I. PHARMACEUTICALS,INC./RIDGEFIELD-2010-BR-00225BR

PATIENT
  Sex: Male

DRUGS (3)
  1. SPIRIVA RESPIMAT [Suspect]
     Indication: EMPHYSEMA
     Dosage: 5 MCG
     Route: 055
     Dates: start: 20100226, end: 20100228
  2. FORASEQ [Concomitant]
     Dosage: NR
  3. FRONTAL [Concomitant]
     Dosage: NR

REACTIONS (9)
  - CHROMATURIA [None]
  - DECREASED APPETITE [None]
  - DYSPNOEA [None]
  - MUSCULAR WEAKNESS [None]
  - PAIN [None]
  - RENAL DISORDER [None]
  - URINARY RETENTION [None]
  - VOMITING [None]
  - WALKING DISABILITY [None]
